FAERS Safety Report 7618238-9 (Version None)
Quarter: 2011Q3

REPORT INFORMATION
  Report Type: 
  Country: None (occurrence: None)
  Receive Date: 20110718
  Receipt Date: 20110708
  Transmission Date: 20111222
  Serious: Yes (Death)
  Sender: FDA-Public Use
  Company Number: JP-GLAXOSMITHKLINE-B0687668A

PATIENT
  Sex: Female
  Weight: 14.7 kg

DRUGS (27)
  1. FLUDARA [Suspect]
     Indication: ALLOGENIC BONE MARROW TRANSPLANTATION THERAPY
     Dosage: 18MGM2 PER DAY
     Route: 042
     Dates: start: 20090408, end: 20090412
  2. FAMOTIDINE [Concomitant]
     Dosage: 5MG PER DAY
     Route: 042
     Dates: start: 20090414, end: 20090526
  3. KYTRIL [Concomitant]
     Dosage: .8MG PER DAY
     Route: 042
     Dates: start: 20090414, end: 20090424
  4. FLUOXETINE [Concomitant]
     Dosage: 6MG PER DAY
     Route: 042
     Dates: start: 20090626, end: 20090628
  5. POLYMYXIN B SULFATE [Concomitant]
     Dosage: 1IUAX PER DAY
     Route: 048
     Dates: start: 20090414, end: 20090521
  6. FAMOTIDINE [Concomitant]
     Dosage: .5G PER DAY
     Route: 048
     Dates: start: 20090527, end: 20090529
  7. PREDNISOLONE [Concomitant]
     Indication: IMMUNOSUPPRESSION
     Dosage: 7MG PER DAY
     Dates: start: 20090417, end: 20090517
  8. FUROSEMIDE [Concomitant]
     Dosage: 10MG PER DAY
     Route: 042
     Dates: start: 20090621, end: 20090628
  9. FAMOTIDINE [Concomitant]
     Dosage: 10MG PER DAY
     Route: 042
     Dates: start: 20090619, end: 20090628
  10. FUNGIZONE [Concomitant]
     Dosage: 800MG PER DAY
     Route: 048
     Dates: start: 20090513, end: 20090628
  11. ALKERAN [Suspect]
     Indication: ALLOGENIC BONE MARROW TRANSPLANTATION THERAPY
     Dosage: 42MGM2 PER DAY
     Route: 042
     Dates: start: 20090414, end: 20090415
  12. THYMOGLOBULIN [Suspect]
     Indication: ALLOGENIC BONE MARROW TRANSPLANTATION THERAPY
     Dosage: 35MGM2 PER DAY
     Route: 042
     Dates: start: 20090413, end: 20090416
  13. NEUTROGIN [Concomitant]
     Dates: start: 20090420, end: 20090508
  14. FUNGUARD [Concomitant]
     Dosage: 15MG PER DAY
     Route: 042
     Dates: start: 20090414, end: 20090615
  15. ACTIDAS [Concomitant]
     Dosage: 160MG PER DAY
     Route: 042
     Dates: start: 20090526, end: 20090612
  16. FUROSEMIDE [Concomitant]
     Dosage: 15MG PER DAY
     Route: 042
     Dates: start: 20090414, end: 20090417
  17. ATARAX [Concomitant]
     Dosage: 15MG PER DAY
     Dates: start: 20090414, end: 20090420
  18. VANCOMYCIN HYCHLORIDE [Concomitant]
     Dosage: 1G PER DAY
     Route: 048
     Dates: start: 20090414, end: 20090502
  19. DIAPP [Concomitant]
     Dosage: 8MG PER DAY
     Route: 054
     Dates: start: 20090626, end: 20090626
  20. SULFAMETHOXAZOLE [Concomitant]
     Dosage: 1IUAX PER DAY
     Route: 048
     Dates: start: 20090502, end: 20090628
  21. TACROLIMUS [Concomitant]
     Indication: IMMUNOSUPPRESSION
     Dosage: .3MG PER DAY
     Route: 065
     Dates: start: 20090415, end: 20090426
  22. METHOTREXATE [Concomitant]
     Indication: IMMUNOSUPPRESSION
     Dosage: 6MG PER DAY
     Route: 042
     Dates: start: 20090418, end: 20090420
  23. FRAGMIN [Concomitant]
     Dosage: 1ML PER DAY
     Route: 042
     Dates: start: 20090414, end: 20090628
  24. FENTANYL-100 [Concomitant]
     Dosage: .015G PER DAY
     Route: 042
     Dates: start: 20090618, end: 20090618
  25. PREDNISOLONE [Concomitant]
     Indication: IMMUNOSUPPRESSION
     Dosage: 7MG PER DAY
     Route: 048
     Dates: start: 20090518, end: 20090524
  26. PIPERACILLIN SODIUM [Concomitant]
     Dosage: 2G PER DAY
     Dates: start: 20090414, end: 20090417
  27. URSO 250 [Concomitant]
     Dosage: 150MG PER DAY
     Route: 048
     Dates: start: 20090414, end: 20090428

REACTIONS (7)
  - HEPATIC FUNCTION ABNORMAL [None]
  - INFECTION [None]
  - HYPERAMMONAEMIA [None]
  - EPSTEIN-BARR VIRUS ASSOCIATED LYMPHOPROLIFERATIVE DISORDER [None]
  - MOUTH HAEMORRHAGE [None]
  - CIRCULATORY COLLAPSE [None]
  - HISTIOCYTOSIS HAEMATOPHAGIC [None]
